FAERS Safety Report 9331339 (Version 1)
Quarter: 2013Q2

REPORT INFORMATION
  Report Type: Spontaneous
  Country: US (occurrence: US)
  Receive Date: 20130605
  Receipt Date: 20130605
  Transmission Date: 20140414
  Serious: No
  Sender: FDA-Public Use
  Company Number: US-TARO-2012P1053748

PATIENT
  Age: 3 Year
  Sex: Female
  Weight: 13.61 kg

DRUGS (1)
  1. CETIRIZINE HCL CHILDRENS ALLERGY SYRUP 5MG/ML [Suspect]
     Dates: start: 20120805, end: 20120810

REACTIONS (1)
  - Vomiting [Recovered/Resolved]
